FAERS Safety Report 17194768 (Version 3)
Quarter: 2021Q3

REPORT INFORMATION
  Report Type: Spontaneous
  Country: IT (occurrence: IT)
  Receive Date: 20191224
  Receipt Date: 20210728
  Transmission Date: 20211014
  Serious: Yes (Hospitalization, Other)
  Sender: FDA-Public Use
  Company Number: IT-AUROBINDO-AUR-APL-2019-107043

PATIENT
  Age: 60 Year
  Sex: Male

DRUGS (14)
  1. IRINOTECAN CONCENTRATE FOR SOLUTION FOR INFUSION [Suspect]
     Active Substance: IRINOTECAN
     Indication: METASTASES TO LIVER
  2. BEVACIZUMAB. [Suspect]
     Active Substance: BEVACIZUMAB
     Indication: COLORECTAL CANCER
     Dosage: UNK, SIX CYCLES RECEIVED
     Route: 065
     Dates: start: 201402
  3. CETUXIMAB. [Suspect]
     Active Substance: CETUXIMAB
     Indication: DISEASE PROGRESSION
     Dosage: UNK, CYCLICAL
     Route: 065
     Dates: start: 201612
  4. FLUOROURACIL. [Suspect]
     Active Substance: FLUOROURACIL
     Indication: METASTASES TO LYMPH NODES
  5. IRINOTECAN CONCENTRATE FOR SOLUTION FOR INFUSION [Suspect]
     Active Substance: IRINOTECAN
     Indication: COLORECTAL CANCER
     Dosage: UNK, SIX CYCLES OF FOLFIRI RECEIVED
     Route: 065
     Dates: start: 201402
  6. FLUOROURACIL. [Suspect]
     Active Substance: FLUOROURACIL
     Indication: COLORECTAL CANCER
     Dosage: UNK, SIX CYCLES OF FOLFIRI RECEIVED
     Route: 065
     Dates: start: 201402
  7. IRINOTECAN CONCENTRATE FOR SOLUTION FOR INFUSION [Suspect]
     Active Substance: IRINOTECAN
     Indication: DISEASE PROGRESSION
  8. CETUXIMAB. [Suspect]
     Active Substance: CETUXIMAB
     Indication: COLORECTAL CANCER
     Dosage: UNK, THIRD?LINE CHEMOTHERAPY ALONGSIDE IRINOTECAN FOLLOWING DISEASE PROGRESSION
     Route: 065
     Dates: start: 201610
  9. FLUOROURACIL. [Suspect]
     Active Substance: FLUOROURACIL
     Indication: METASTASES TO LUNG
     Dosage: UNK, FOLFOX REGIMEN; REMISSION AFTER 11 CYCLES
     Route: 065
     Dates: start: 201511
  10. FOLINIC ACID [Suspect]
     Active Substance: LEUCOVORIN
     Indication: COLORECTAL CANCER
     Dosage: UNK, SIX CYCLES OF FOLFIRI RECEIVED
     Route: 065
     Dates: start: 201402
  11. IRINOTECAN CONCENTRATE FOR SOLUTION FOR INFUSION [Suspect]
     Active Substance: IRINOTECAN
     Indication: METASTASES TO LUNG
     Dosage: UNK, CYCLICAL
     Route: 065
     Dates: start: 201612
  12. OXALIPLATIN. [Suspect]
     Active Substance: OXALIPLATIN
     Indication: COLORECTAL CANCER
     Dosage: UNK, FOLFOX REGIMEN; REMISSION AFTER 11 CYCLES
     Route: 065
     Dates: start: 201511
  13. IRINOTECAN CONCENTRATE FOR SOLUTION FOR INFUSION [Suspect]
     Active Substance: IRINOTECAN
     Indication: METASTASES TO LYMPH NODES
     Dosage: UNK, THIRD?LINE CHEMOTHERAPY ALONGSIDE CETUXIMAB FOLLOWING DISEASE PROGRESSION
     Route: 065
  14. FLUOROURACIL. [Suspect]
     Active Substance: FLUOROURACIL
     Indication: METASTASES TO LIVER
     Dosage: UNK
     Route: 065

REACTIONS (2)
  - Bacteraemia [Recovered/Resolved]
  - Device related infection [Recovered/Resolved]

NARRATIVE: CASE EVENT DATE: 20170411
